FAERS Safety Report 9396281 (Version 2)
Quarter: 2013Q3

REPORT INFORMATION
  Report Type: Spontaneous
  Country: JP (occurrence: None)
  Receive Date: 20130701
  Receipt Date: 20130813
  Transmission Date: 20140515
  Serious: Yes (Hospitalization, Disabling)
  Sender: FDA-Public Use
  Company Number: 0239619

PATIENT
  Age: 74 Year
  Sex: Female

DRUGS (6)
  1. TACHOSIL [Suspect]
     Indication: HAEMOSTASIS
     Dosage: 5 SHEETS OF REGULAR SIZE
     Dates: start: 20130403
  2. RED BLOOD CELL CONCENTRATE [Concomitant]
  3. PLATELET CONCENTRATE (DIPYRIDAMOLE) [Concomitant]
  4. FROZEN PLASMA (PLASMA PROTEIN FRACTION (HUMAN)) [Concomitant]
  5. PLASMA DERIVED PRODUCT (PLASMA) [Concomitant]
  6. SURGICAL (OXIDISED CELLULOSE) [Concomitant]

REACTIONS (5)
  - Cardiac tamponade [None]
  - Hypersensitivity [None]
  - Red blood cell count decreased [None]
  - Haemoglobin decreased [None]
  - White blood cell count decreased [None]
